FAERS Safety Report 13229937 (Version 2)
Quarter: 2017Q2

REPORT INFORMATION
  Report Type: Spontaneous
  Country: US (occurrence: US)
  Receive Date: 20170214
  Receipt Date: 20170530
  Transmission Date: 20170830
  Serious: No
  Sender: FDA-Public Use
  Company Number: US-PFIZER INC-2017061576

PATIENT
  Age: 57 Year
  Sex: Female

DRUGS (2)
  1. LIDOCAINE HCL [Suspect]
     Active Substance: LIDOCAINE HYDROCHLORIDE
     Indication: NERVE BLOCK
     Dosage: UNK
     Route: 008
  2. BOTOX [Suspect]
     Active Substance: ONABOTULINUMTOXINA
     Indication: NERVE BLOCK
     Dosage: UNK
     Route: 008

REACTIONS (1)
  - Drug ineffective [Unknown]
